FAERS Safety Report 8606862 (Version 2)
Quarter: 2012Q4

REPORT INFORMATION
  Report Type: Report from Study
  Country: US (occurrence: US)
  Receive Date: 20120611
  Receipt Date: 20120925
  Transmission Date: 20130627
  Serious: Yes (Other)
  Sender: FDA-Public Use
  Company Number: US-BIOGENIDEC-2012BI019985

PATIENT
  Age: 60 Year
  Sex: Female
  Weight: 63 kg

DRUGS (15)
  1. TYSABRI [Suspect]
     Indication: MULTIPLE SCLEROSIS
     Route: 042
     Dates: start: 20090914
  2. ALIGN [Concomitant]
     Indication: CONSTIPATION
     Route: 048
     Dates: start: 2010
  3. CALCIUM CITRATE [Concomitant]
     Route: 048
     Dates: start: 2009
  4. VITAMIN D [Concomitant]
     Route: 048
     Dates: start: 2009
  5. MIRAPEX [Concomitant]
     Indication: RESTLESS LEGS SYNDROME
     Route: 048
     Dates: start: 20120521
  6. ABILIFY [Concomitant]
     Indication: BIPOLAR DISORDER
     Route: 048
     Dates: start: 2010
  7. BACTRIM [Concomitant]
     Indication: PROPHYLAXIS URINARY TRACT INFECTION
     Route: 048
     Dates: start: 2009
  8. LITHIUM [Concomitant]
     Indication: BIPOLAR DISORDER
     Route: 048
     Dates: start: 20090914
  9. LITHIUM [Concomitant]
     Indication: BIPOLAR DISORDER
     Route: 048
     Dates: start: 20090914
  10. LAMICTAL [Concomitant]
     Indication: BIPOLAR DISORDER
     Route: 048
     Dates: start: 20090914
  11. SINGULAIR [Concomitant]
     Route: 048
     Dates: start: 2009
  12. TAMSULOSIN [Concomitant]
     Route: 048
     Dates: start: 2009
  13. XOPENEX [Concomitant]
     Route: 055
     Dates: start: 2009
  14. MULTIVITAMIN [Concomitant]
     Dates: start: 200710
  15. FOSAMAX [Concomitant]
     Indication: OSTEOPOROSIS

REACTIONS (1)
  - Renal failure [Not Recovered/Not Resolved]
